FAERS Safety Report 9858249 (Version 2)
Quarter: 2014Q1

REPORT INFORMATION
  Report Type: Spontaneous
  Country: GB (occurrence: None)
  Receive Date: 20140129
  Receipt Date: 20140305
  Transmission Date: 20141002
  Serious: Yes (Other)
  Sender: FDA-Public Use
  Company Number: AUR-APL-2014-00048

PATIENT
  Age: 43 Year
  Sex: Male

DRUGS (9)
  1. CITALOPRAM (CITALOPRAM) [Suspect]
     Indication: PRODUCT USED FOR UNKNOWN INDICATION
  2. AMISULPRIDE (AMISULPRIDE) [Suspect]
     Indication: PRODUCT USED FOR UNKNOWN INDICATION
  3. CLOZARIL (CLOZAPINE) [Suspect]
     Indication: SCHIZOPHRENIA
     Route: 048
     Dates: start: 1995
  4. ARIPIPRAZOLE ARIPIPRAZOLE) [Concomitant]
  5. RISPERIDONE (RISPERIDONE) [Concomitant]
  6. BENDROFLUMETHIAZIDE (BENDROFLUMETHIAZOLE) [Concomitant]
  7. DEPAKOTE (VALPROATE SEMISODIUM) [Concomitant]
  8. PROMETHAZINE (PROMETHAZINE) [Concomitant]
  9. AMLODIPINE (AMLODPINE) [Concomitant]

REACTIONS (1)
  - Electrocardiogram QT prolonged [None]
